FAERS Safety Report 9934537 (Version 1)
Quarter: 2014Q1

REPORT INFORMATION
  Report Type: Spontaneous
  Country: US (occurrence: US)
  Receive Date: 20140228
  Receipt Date: 20140228
  Transmission Date: 20141002
  Serious: No
  Sender: FDA-Public Use
  Company Number: US-ASTRAZENECA-2013SE77537

PATIENT
  Age: 72 Year
  Sex: Male
  Weight: 85.7 kg

DRUGS (5)
  1. TOPROL-XL [Suspect]
     Indication: HEART RATE IRREGULAR
     Dosage: PAR
     Route: 048
     Dates: start: 2010, end: 2010
  2. TOPROL-XL [Suspect]
     Indication: HEART RATE IRREGULAR
     Route: 048
     Dates: start: 2010
  3. BABY ASPIRIN [Concomitant]
     Indication: CARDIAC DISORDER
     Dosage: 81 MGS DAILY
     Route: 048
  4. ATORVASTATIN [Concomitant]
     Indication: CARDIAC DISORDER
     Dosage: NOT REPORTED DAILY
     Route: 048
  5. SYNTHROID [Concomitant]
     Dosage: 125 MCGS DAILY
     Route: 048

REACTIONS (4)
  - Cardiac disorder [Unknown]
  - Atrial fibrillation [Unknown]
  - Heart rate irregular [Unknown]
  - Off label use [Unknown]
